FAERS Safety Report 15952037 (Version 1)
Quarter: 2019Q1

REPORT INFORMATION
  Report Type: Spontaneous
  Country: DE (occurrence: DE)
  Receive Date: 20190211
  Receipt Date: 20190211
  Transmission Date: 20190417
  Serious: Yes (Death, Hospitalization)
  Sender: FDA-Public Use
  Company Number: DE-NOVAST LABORATORIES, LTD-DE-2019NOV000028

PATIENT
  Age: 81 Year
  Sex: Female

DRUGS (5)
  1. TIROFIBAN [Suspect]
     Active Substance: TIROFIBAN
     Indication: PRODUCT USED FOR UNKNOWN INDICATION
     Dosage: 25 ?G/KG, FOR OVER 3 MIN
     Route: 040
  2. TIROFIBAN [Suspect]
     Active Substance: TIROFIBAN
     Dosage: 0.15 ?G/KG, FOR OVER 18H
     Route: 042
  3. TICAGRELOR. [Suspect]
     Active Substance: TICAGRELOR
     Indication: PRODUCT USED FOR UNKNOWN INDICATION
     Dosage: 180 MG, UNK
     Route: 048
  4. NOREPINEPHRINE. [Concomitant]
     Active Substance: NOREPINEPHRINE
     Indication: PRODUCT USED FOR UNKNOWN INDICATION
     Dosage: UNK
  5. CARISOPRODOL\ASPIRIN [Suspect]
     Active Substance: ASPIRIN\CARISOPRODOL
     Indication: PRODUCT USED FOR UNKNOWN INDICATION
     Dosage: 250 MG, UNK
     Route: 042

REACTIONS (4)
  - Post procedural haematoma [Unknown]
  - Cardiac arrest [Unknown]
  - Shock haemorrhagic [Fatal]
  - Vessel puncture site haemorrhage [Unknown]
